FAERS Safety Report 5238324-0 (Version None)
Quarter: 2007Q1

REPORT INFORMATION
  Report Type: 
  Country: None (occurrence: None)
  Receive Date: 20070209
  Receipt Date: 20070209
  Transmission Date: 20070707
  Serious: No
  Sender: FDA-Public Use
  Company Number: None

PATIENT
  Sex: Female
  Weight: 48.6 kg

DRUGS (2)
  1. CARBOPLATIN(241240) [Suspect]
     Dosage: 800 MG
  2. TAXOL [Suspect]
     Dosage: 260 MG

REACTIONS (1)
  - NEUTROPENIA [None]
